FAERS Safety Report 6285632-0 (Version None)
Quarter: 2009Q3

REPORT INFORMATION
  Report Type: 
  Country: None (occurrence: None)
  Receive Date: 20090727
  Receipt Date: 20090127
  Transmission Date: 20100115
  Serious: Yes (Other)
  Sender: FDA-Public Use
  Company Number: CA-GENENTECH-276224

PATIENT
  Sex: Female

DRUGS (1)
  1. LUCENTIS [Suspect]
     Indication: MACULAR DEGENERATION

REACTIONS (4)
  - DRUG ADMINISTRATION ERROR [None]
  - EYE DISCHARGE [None]
  - EYE SWELLING [None]
  - PHOTOSENSITIVITY REACTION [None]
